FAERS Safety Report 8803802 (Version 1)
Quarter: 2012Q4

REPORT INFORMATION
  Report Type: 
  Country: US (occurrence: US)
  Receive Date: 20120923
  Receipt Date: 20120923
  Transmission Date: 20130627
  Serious: No
  Sender: FDA-Public Use
  Company Number: US-009507513-1209USA001241

PATIENT
  Sex: Male

DRUGS (3)
  1. ISENTRESS [Suspect]
     Indication: HIV INFECTION
     Dosage: 400 mg, bid
     Route: 048
     Dates: start: 2006, end: 20120816
  2. PREZISTA [Concomitant]
  3. NORVIR [Concomitant]

REACTIONS (2)
  - T-lymphocyte count abnormal [Not Recovered/Not Resolved]
  - Microbiology test abnormal [Not Recovered/Not Resolved]
